FAERS Safety Report 6820403-5 (Version None)
Quarter: 2010Q3

REPORT INFORMATION
  Report Type: 
  Country: None (occurrence: None)
  Receive Date: 20100707
  Receipt Date: 20100629
  Transmission Date: 20110219
  Serious: Yes (Hospitalization)
  Sender: FDA-Public Use
  Company Number: NO-ABBOTT-10P-122-0654099-00

PATIENT
  Age: 52 Year
  Sex: Female

DRUGS (2)
  1. REDUCTIL 10MG [Suspect]
     Indication: OBESITY
     Route: 048
     Dates: start: 20070424
  2. LEVOTHYROXINE SODIUM [Concomitant]
     Indication: HYPOTHYROIDISM

REACTIONS (1)
  - INFARCTION [None]
